FAERS Safety Report 7521438-X (Version None)
Quarter: 2011Q2

REPORT INFORMATION
  Report Type: 
  Country: None (occurrence: None)
  Receive Date: 20110603
  Receipt Date: 20110119
  Transmission Date: 20111010
  Serious: Yes (Death)
  Sender: FDA-Public Use
  Company Number: US-BAYER-2010-005361

PATIENT
  Age: 54 Year
  Sex: Male
  Weight: 87.528 kg

DRUGS (5)
  1. MORPHINE-SP [Concomitant]
     Indication: CANCER PAIN
     Dosage: 30 MG, UNK
     Dates: start: 20101116, end: 20101216
  2. TESSALON [Concomitant]
     Indication: COUGH
     Dosage: 200 MG, UNK
     Dates: start: 20101212, end: 20101216
  3. ERLOTINIB HYDROCHLORIDE [Suspect]
  4. SORAFENIB (RAF KINASE INHIBITOR) [Suspect]
     Indication: NON-SMALL CELL LUNG CANCER
     Dosage: 800 MG, BID
     Dates: start: 20101018, end: 20101216
  5. NORVASC [Concomitant]
     Indication: HYPERTENSION
     Dosage: 2.5 MG, QD
     Dates: start: 20101101, end: 20101216

REACTIONS (1)
  - PULMONARY HAEMORRHAGE [None]
